FAERS Safety Report 7652301-1 (Version None)
Quarter: 2011Q3

REPORT INFORMATION
  Report Type: 
  Country: None (occurrence: None)
  Receive Date: 20110803
  Receipt Date: 20110729
  Transmission Date: 20111222
  Serious: Yes (Hospitalization)
  Sender: FDA-Public Use
  Company Number: DE-BAYER-2011-056403

PATIENT
  Age: 38 Year
  Sex: Female
  Weight: 100 kg

DRUGS (3)
  1. IBU [Suspect]
     Dosage: 600 MG, UNK
     Dates: start: 20110601, end: 20110617
  2. BETASERON [Suspect]
     Dosage: 250 ?G, QOD
     Route: 058
     Dates: start: 20110601, end: 20110617
  3. DOXEPIN [Concomitant]
     Dosage: 12.5 MG, UNK
     Dates: start: 20110601, end: 20110617

REACTIONS (2)
  - AGGRESSION [None]
  - MENTAL DISORDER [None]
